FAERS Safety Report 15410959 (Version 1)
Quarter: 2018Q3

REPORT INFORMATION
  Report Type: Spontaneous
  Country: US (occurrence: US)
  Receive Date: 20180919
  Receipt Date: 20180919
  Transmission Date: 20181010
  Serious: Yes (Hospitalization, Other)
  Sender: FDA-Public Use
  Company Number: None

PATIENT
  Age: 3 Year

DRUGS (1)
  1. 4 KIDS COMPLETE COLD AND MUCUS [Suspect]
     Active Substance: HOMEOPATHICS

REACTIONS (5)
  - Unresponsive to stimuli [None]
  - Product quality issue [None]
  - Respiratory failure [None]
  - Vomiting [None]
  - Carbon dioxide increased [None]

NARRATIVE: CASE EVENT DATE: 20180903
